FAERS Safety Report 8989827 (Version 1)
Quarter: 2012Q4

REPORT INFORMATION
  Report Type: 
  Country: US (occurrence: US)
  Receive Date: 20121228
  Receipt Date: 20121228
  Transmission Date: 20130627
  Serious: Yes (Hospitalization, Other)
  Sender: FDA-Public Use
  Company Number: US-009507513-1212USA006904

PATIENT
  Sex: Male
  Weight: 79.37 kg

DRUGS (4)
  1. ZOCOR [Suspect]
     Indication: BLOOD CHOLESTEROL
     Dosage: UNK
     Dates: start: 1997
  2. CLONAZEPAM [Suspect]
     Indication: ANXIETY
     Dosage: 1 mg, bid
     Dates: start: 2009
  3. CLONAZEPAM [Suspect]
     Indication: PANIC ATTACK
  4. ANTIMICROBIAL (UNSPECIFIED) [Suspect]
     Indication: SINUSITIS
     Dosage: UNK
     Dates: start: 201211

REACTIONS (7)
  - Renal failure chronic [Unknown]
  - Sinusitis [Unknown]
  - Asthenia [Recovering/Resolving]
  - Malaise [Recovering/Resolving]
  - Renal disorder [Recovering/Resolving]
  - Muscle disorder [Recovering/Resolving]
  - Blood cholesterol increased [Unknown]
